FAERS Safety Report 6111406-7 (Version None)
Quarter: 2009Q1

REPORT INFORMATION
  Report Type: 
  Country: None (occurrence: None)
  Receive Date: 20090309
  Receipt Date: 20081120
  Transmission Date: 20090719
  Serious: Yes (Hospitalization)
  Sender: FDA-Public Use
  Company Number: 2008EU002643

PATIENT
  Age: 77 Year
  Sex: Female

DRUGS (1)
  1. PROGRAF [Suspect]
     Indication: HEART TRANSPLANT
     Dosage: 0.1 MG, OTHER,  0.5 MG, OTHER
     Route: 050

REACTIONS (1)
  - GLAUCOMA [None]
